FAERS Safety Report 7808156-5 (Version None)
Quarter: 2011Q4

REPORT INFORMATION
  Report Type: 
  Country: None (occurrence: None)
  Receive Date: 20111011
  Receipt Date: 20110930
  Transmission Date: 20120403
  Serious: Yes (Death)
  Sender: FDA-Public Use
  Company Number: JP-AMGEN-JPNCT2011051841

PATIENT
  Age: 55 Year
  Sex: Male
  Weight: 54 kg

DRUGS (9)
  1. FLUOROURACIL [Concomitant]
     Indication: COLORECTAL CANCER
     Route: 040
     Dates: start: 20100928, end: 20101208
  2. HIRUDOID [Concomitant]
     Dosage: UNK
     Route: 062
  3. IRINOTECAN HCL [Concomitant]
     Indication: COLORECTAL CANCER
     Route: 041
     Dates: start: 20100928, end: 20101208
  4. TERRA-CORTRIL [Concomitant]
     Dosage: UNK
     Route: 062
  5. DRENISON [Concomitant]
     Dosage: UNK
     Route: 062
  6. LEVOLEUCOVORIN CALCIUM [Concomitant]
     Indication: COLORECTAL CANCER
     Route: 041
     Dates: start: 20100928, end: 20101208
  7. PANITUMUMAB [Suspect]
     Indication: COLORECTAL CANCER
     Dosage: 6 MG/KG, Q2WK
     Route: 041
     Dates: start: 20100928, end: 20101208
  8. FLUOROURACIL [Concomitant]
     Route: 041
     Dates: start: 20100928, end: 20101208
  9. MINOCYCLINE HCL [Concomitant]
     Dosage: UNK
     Route: 048

REACTIONS (4)
  - DERMATITIS ACNEIFORM [None]
  - DRY SKIN [None]
  - DEATH [None]
  - RASH MACULO-PAPULAR [None]
